FAERS Safety Report 18000009 (Version 3)
Quarter: 2021Q4

REPORT INFORMATION
  Report Type: Report from Study
  Country: US (occurrence: US)
  Receive Date: 20200709
  Receipt Date: 20211116
  Transmission Date: 20220303
  Serious: No
  Sender: FDA-Public Use
  Company Number: US-KYOWAKIRIN-2020BKK011184

PATIENT

DRUGS (3)
  1. CRYSVITA [Suspect]
     Active Substance: BUROSUMAB-TWZA
     Indication: Hereditary hypophosphataemic rickets
     Dosage: 70 MG, 1X/4 WEEKS
     Route: 058
     Dates: start: 20190606
  2. CRYSVITA [Suspect]
     Active Substance: BUROSUMAB-TWZA
     Indication: Hereditary hypophosphataemic rickets
     Dosage: 10 MG (COMBINED WITH THE DOSE OF 60 MG TO ACHIEVE A TOTAL DOSE OF 70 MG), EVERY 4 WEEKS
     Route: 058
     Dates: start: 20190917
  3. CRYSVITA [Suspect]
     Active Substance: BUROSUMAB-TWZA
     Indication: Hereditary hypophosphataemic rickets
     Dosage: 60 MG (COMBINED WITH A TOTAL DOSE OF 10 MG TO ACHIEVE TOTAL DOSE OF 70 MG), EVERY 4 WEEKS
     Route: 058
     Dates: start: 20190917

REACTIONS (2)
  - Migraine [Recovered/Resolved]
  - Inappropriate schedule of product administration [Recovered/Resolved]
